FAERS Safety Report 9038796 (Version 1)
Quarter: 2013Q1

REPORT INFORMATION
  Report Type: Spontaneous
  Country: US (occurrence: None)
  Receive Date: 20130122
  Receipt Date: 20130122
  Transmission Date: 20140127
  Serious: Yes (Other)
  Sender: FDA-Public Use
  Company Number: None

PATIENT
  Age: 51 Year
  Sex: Male

DRUGS (3)
  1. RIBAVIRIN [Suspect]
     Indication: HEPATITIS C
     Dosage: 600 MG QAM AND 400MG QPM
     Dates: start: 20121102, end: 20130102
  2. PEGASYS [Concomitant]
  3. VICTRELIS [Concomitant]

REACTIONS (1)
  - Cranial nerve paralysis [None]
